FAERS Safety Report 9554169 (Version 1)
Quarter: 2013Q3

REPORT INFORMATION
  Report Type: Spontaneous
  Country: TH (occurrence: None)
  Receive Date: 20130814
  Receipt Date: 20130814
  Transmission Date: 20140515
  Serious: Yes (Hospitalization)
  Sender: FDA-Public Use
  Company Number: 2013-00420

PATIENT
  Age: 62 Year
  Sex: Male

DRUGS (6)
  1. ETHAMBUTOL [Suspect]
     Dosage: 800 MG (UNKNOWN, DAILY) , UNKNOWN
  2. ISONIAZID [Suspect]
     Dosage: 300 MG (UNKNOWN, DAILY) , UNKNOWN
  3. RIFAMPICIN (UNKNOWN) [Suspect]
     Indication: PULMONARY TUBERCULOSIS
     Dosage: 450 MG  (UNKNOWN, DAILY) , UNKNOWN
  4. AMLODIPINE (UNKNOWN) [Concomitant]
  5. METFORMIN (UNKNOWN) [Concomitant]
  6. GLIPIZIDE (UNKNOWN) [Concomitant]

REACTIONS (1)
  - Hypersensitivity vasculitis [None]
